FAERS Safety Report 20470632 (Version 1)
Quarter: 2022Q1

REPORT INFORMATION
  Report Type: Spontaneous
  Country: IL (occurrence: None)
  Receive Date: 20220214
  Receipt Date: 20220214
  Transmission Date: 20220423
  Serious: Yes (Other)
  Sender: FDA-Public Use
  Company Number: 2022A068841

PATIENT
  Age: 49 Year
  Sex: Female

DRUGS (9)
  1. FASLODEX [Suspect]
     Active Substance: FULVESTRANT
     Indication: Breast cancer female
     Route: 030
  2. PALBOCICLIB [Suspect]
     Active Substance: PALBOCICLIB
     Indication: Hormone suppression therapy
     Route: 065
     Dates: start: 201710
  3. PALBOCICLIB [Suspect]
     Active Substance: PALBOCICLIB
     Indication: Therapeutic ovarian suppression
     Route: 065
     Dates: start: 201710
  4. LEUPROLIDE ACETATE [Concomitant]
     Active Substance: LEUPROLIDE ACETATE
     Indication: Hormone suppression therapy
     Dates: start: 201710
  5. LEUPROLIDE ACETATE [Concomitant]
     Active Substance: LEUPROLIDE ACETATE
     Indication: Therapeutic ovarian suppression
     Dates: start: 201710
  6. LETROZOLE [Concomitant]
     Active Substance: LETROZOLE
     Indication: Organ preservation
     Dates: start: 201710
  7. LETROZOLE [Concomitant]
     Active Substance: LETROZOLE
     Indication: Therapeutic ovarian suppression
     Dates: start: 201710
  8. RECLAST [Concomitant]
     Active Substance: ZOLEDRONIC ACID
     Indication: Organ preservation
     Dates: start: 201710
  9. RECLAST [Concomitant]
     Active Substance: ZOLEDRONIC ACID
     Indication: Organ preservation
     Dates: start: 201710

REACTIONS (2)
  - Malignant neoplasm progression [Unknown]
  - Metastases to liver [Unknown]

NARRATIVE: CASE EVENT DATE: 20190601
